FAERS Safety Report 18966019 (Version 2)
Quarter: 2022Q3

REPORT INFORMATION
  Report Type: Report from Study
  Country: CA (occurrence: CA)
  Receive Date: 20210304
  Receipt Date: 20220714
  Transmission Date: 20221027
  Serious: Yes (Other)
  Sender: FDA-Public Use
  Company Number: CA-JNJFOC-20200417576

PATIENT
  Age: 26 Year
  Sex: Female
  Weight: 56 kg

DRUGS (8)
  1. STELARA [Suspect]
     Active Substance: USTEKINUMAB
     Indication: Colitis ulcerative
     Dosage: ON 10-JUN-2020, THE PATIENT RECEIVED 2ND  USTEKINUMAB  INFUSION FOR DOSE OF 90MG AND PARTIAL HARVEY-
     Route: 042
     Dates: start: 20200414
  2. STELARA [Suspect]
     Active Substance: USTEKINUMAB
     Dosage: ON 26-FEB-2021, THE PATIENT RECEIVED 10TH INJECTION WITH 90 MG DOSE OF USTEKINUMAB.
     Route: 058
     Dates: start: 20200617
  3. STELARA [Suspect]
     Active Substance: USTEKINUMAB
     Dosage: REQUESTS IV STELARA RELOAD
     Route: 042
  4. VITAMIN D                          /00107901/ [Concomitant]
     Indication: Product used for unknown indication
     Route: 048
  5. CALCIUM [Concomitant]
     Active Substance: CALCIUM
     Indication: Product used for unknown indication
     Route: 065
  6. PRENATAL VITAMINS                  /02014401/ [Concomitant]
     Indication: Product used for unknown indication
     Route: 048
  7. IRON [Concomitant]
     Active Substance: IRON
     Indication: Product used for unknown indication
     Route: 065
  8. PENTASA [Concomitant]
     Active Substance: MESALAMINE
     Indication: Product used for unknown indication
     Route: 065

REACTIONS (9)
  - Haematochezia [Unknown]
  - Caesarean section [Unknown]
  - Mastitis [Recovered/Resolved]
  - General physical health deterioration [Unknown]
  - Frequent bowel movements [Unknown]
  - Exposure during pregnancy [Recovered/Resolved]
  - Drug ineffective [Unknown]
  - Gastrointestinal inflammation [Unknown]
  - Off label use [Unknown]

NARRATIVE: CASE EVENT DATE: 20200101
